FAERS Safety Report 18160623 (Version 1)
Quarter: 2020Q3

REPORT INFORMATION
  Report Type: Spontaneous
  Country: US (occurrence: US)
  Receive Date: 20200817
  Receipt Date: 20200817
  Transmission Date: 20201103
  Serious: Yes (Life-Threatening, Other)
  Sender: FDA-Public Use
  Company Number: US-PURDUE-USA-2020-0161097

PATIENT
  Sex: Male

DRUGS (1)
  1. HYDROCODONE BITARTRATE AND ACETAMINOPHEN [Suspect]
     Active Substance: ACETAMINOPHEN\HYDROCODONE BITARTRATE
     Indication: PRODUCT USED FOR UNKNOWN INDICATION
     Dosage: 10?325 MG TABLET, 1 EVERY 4 HOURS
     Route: 048

REACTIONS (4)
  - Deep vein thrombosis [Unknown]
  - Drug dependence [Unknown]
  - Alcoholism [Unknown]
  - Pulmonary embolism [Unknown]
